FAERS Safety Report 7624202-6 (Version None)
Quarter: 2011Q3

REPORT INFORMATION
  Report Type: 
  Country: None (occurrence: None)
  Receive Date: 20110720
  Receipt Date: 20110720
  Transmission Date: 20111222
  Serious: Yes (Life-Threatening)
  Sender: FDA-Public Use
  Company Number: None

PATIENT
  Sex: Female
  Weight: 72 kg

DRUGS (2)
  1. DAPTOMYCIN [Suspect]
     Indication: ARTHRITIS INFECTIVE
     Dosage: 550 MG
     Route: 040
     Dates: start: 20110717, end: 20110717
  2. DAPTOMYCIN [Suspect]
     Indication: CELLULITIS
     Dosage: 550 MG
     Route: 040
     Dates: start: 20110717, end: 20110717

REACTIONS (5)
  - SINUS BRADYCARDIA [None]
  - CARDIO-RESPIRATORY ARREST [None]
  - WHITE BLOOD CELL COUNT INCREASED [None]
  - INFUSION RELATED REACTION [None]
  - PYREXIA [None]
